FAERS Safety Report 8582300-7 (Version None)
Quarter: 2012Q3

REPORT INFORMATION
  Report Type: 
  Country: None (occurrence: None)
  Receive Date: 20120809
  Receipt Date: 20120731
  Transmission Date: 20120928
  Serious: Yes (Other)
  Sender: FDA-Public Use
  Company Number: PHHY2012BR046758

PATIENT
  Sex: Male
  Weight: 75 kg

DRUGS (11)
  1. DIOVAN [Suspect]
     Dosage: 1 DF/DAY (320 MG)
     Route: 048
  2. CLOPIDOGREL [Concomitant]
     Indication: BLOOD PRESSURE ABNORMAL
     Dosage: 1 DF, UNK
     Route: 048
  3. SIMVASTATIN [Concomitant]
     Indication: BLOOD CHOLESTEROL ABNORMAL
     Dosage: 2 DF, UNK
     Route: 048
  4. ATENOLOL [Concomitant]
     Indication: BLOOD PRESSURE ABNORMAL
     Dosage: 1 DF, UNK
     Route: 048
  5. AMLODIPINE [Concomitant]
     Dosage: 1 DF, UNK
     Route: 048
  6. DIOVAN [Suspect]
     Indication: BLOOD PRESSURE
     Dosage: 1 DF/DAY (160 MG)
     Route: 048
     Dates: start: 20030101
  7. ENALAPRIL MALEATE [Concomitant]
     Dosage: 2 DF, UNK
     Route: 048
  8. SEROQUEL [Concomitant]
     Indication: CONVULSION
     Dosage: 1 DF, UNK
     Route: 048
  9. SOMALGIN [Concomitant]
     Dosage: 2 DF, UNK
     Route: 048
  10. OMEPRAZOLE [Concomitant]
     Indication: GASTRIC DISORDER
     Dosage: 1 DF, UNK
     Route: 048
  11. ASPIRIN [Concomitant]
     Indication: COAGULOPATHY
     Dosage: 1 DF, UNK
     Route: 048

REACTIONS (6)
  - DYSKINESIA [None]
  - CONFUSIONAL STATE [None]
  - BLOOD PRESSURE INCREASED [None]
  - GENERAL PHYSICAL HEALTH DETERIORATION [None]
  - MEMORY IMPAIRMENT [None]
  - CEREBROVASCULAR ACCIDENT [None]
